FAERS Safety Report 23577902 (Version 1)
Quarter: 2024Q1

REPORT INFORMATION
  Report Type: Report from Study
  Country: US (occurrence: US)
  Receive Date: 20240228
  Receipt Date: 20240228
  Transmission Date: 20240409
  Serious: Yes (Hospitalization, Other)
  Sender: FDA-Public Use
  Company Number: US-ABBVIE-5655922

PATIENT
  Sex: Female

DRUGS (4)
  1. HUMIRA [Suspect]
     Active Substance: ADALIMUMAB
     Indication: Hidradenitis
     Dosage: FORM STRENGTH: 40 MG, CITRATE FREE
     Route: 058
     Dates: start: 20220901, end: 20230901
  2. HUMIRA [Suspect]
     Active Substance: ADALIMUMAB
     Dosage: LAST ADMIN DATE: 2022,?FORM STRENGTH: 40 MG, CITRATE FREE
     Route: 058
     Dates: start: 20220226
  3. CELEBREX [Concomitant]
     Active Substance: CELECOXIB
     Indication: Muscle relaxant therapy
     Dates: start: 20200227
  4. HYDROCODONE [Concomitant]
     Active Substance: HYDROCODONE
     Indication: Pain
     Dates: start: 20200227

REACTIONS (7)
  - Ankle operation [Not Recovered/Not Resolved]
  - Ankle operation [Recovered/Resolved]
  - Arthralgia [Not Recovered/Not Resolved]
  - Anorectal swelling [Recovered/Resolved]
  - Hidradenitis [Recovered/Resolved]
  - Hidradenitis [Recovered/Resolved]
  - Thrombosis [Recovering/Resolving]

NARRATIVE: CASE EVENT DATE: 20220101
